FAERS Safety Report 9473950 (Version 2)
Quarter: 2013Q3

REPORT INFORMATION
  Report Type: Spontaneous
  Country: US (occurrence: US)
  Receive Date: 20130823
  Receipt Date: 20130823
  Transmission Date: 20140515
  Serious: Yes (Other)
  Sender: FDA-Public Use
  Company Number: US-BRISTOL-MYERS SQUIBB COMPANY-17184425

PATIENT
  Age: 67 Year
  Sex: Male
  Weight: 78.91 kg

DRUGS (3)
  1. SPRYCEL [Suspect]
     Indication: CHRONIC MYELOID LEUKAEMIA
     Dosage: INCREASED TO 150MG/DAY ON 15NOV12?POTENCY:140MG TABLET?INCREASED TO IN 200MG DOSE
     Dates: start: 201210
  2. METOPROLOL [Concomitant]
  3. VITAMIN B12 [Concomitant]
     Indication: VITAMIN B12 DEFICIENCY
     Route: 060

REACTIONS (3)
  - Malignant neoplasm progression [Unknown]
  - Platelet count decreased [Unknown]
  - White blood cell count decreased [Unknown]
